FAERS Safety Report 6425507-7 (Version None)
Quarter: 2009Q4

REPORT INFORMATION
  Report Type: 
  Country: None (occurrence: None)
  Receive Date: 20091102
  Receipt Date: 20090727
  Transmission Date: 20100525
  Serious: No
  Sender: FDA-Public Use
  Company Number: VMOE-7UUNQF

PATIENT
  Age: 52 Year
  Sex: Male

DRUGS (2)
  1. DURAPREP [Suspect]
     Indication: PREOPERATIVE CARE
     Dosage: 26 ML, TOPICAL SINGLE APPLICATION
     Route: 061
  2. LOBAN [Concomitant]

REACTIONS (1)
  - SKIN LACERATION [None]
